FAERS Safety Report 8964142 (Version 2)
Quarter: 2013Q1

REPORT INFORMATION
  Report Type: Spontaneous
  Country: US (occurrence: US)
  Receive Date: 20121213
  Receipt Date: 20130116
  Transmission Date: 20140127
  Serious: Yes (Life-Threatening, Other)
  Sender: FDA-Public Use
  Company Number: US-B.I. PHARMACEUTICALS,INC./RIDGEFIELD-2012-BI-02533BP

PATIENT
  Age: 49 Year
  Sex: Male
  Weight: 105.23 kg

DRUGS (1)
  1. PRADAXA [Suspect]
     Indication: ATRIAL FIBRILLATION
     Dates: start: 20121011

REACTIONS (2)
  - Pulmonary embolism [Recovered/Resolved]
  - Pericarditis [Unknown]
